FAERS Safety Report 13893591 (Version 1)
Quarter: 2017Q3

REPORT INFORMATION
  Report Type: Report from Study
  Country: AU (occurrence: AU)
  Receive Date: 20170822
  Receipt Date: 20170822
  Transmission Date: 20171127
  Serious: Yes (Hospitalization, Other)
  Sender: FDA-Public Use
  Company Number: AU-REGENERON PHARMACEUTICALS, INC.-2017-20423

PATIENT

DRUGS (1)
  1. EYLEA [Suspect]
     Active Substance: AFLIBERCEPT
     Indication: NEOVASCULAR AGE-RELATED MACULAR DEGENERATION
     Dosage: LAST DOSE AUG-2017
     Route: 031
     Dates: start: 20160302

REACTIONS (6)
  - Weight decreased [Unknown]
  - Vitreous floaters [Not Recovered/Not Resolved]
  - Hip arthroplasty [Recovered/Resolved with Sequelae]
  - Hip fracture [Recovered/Resolved with Sequelae]
  - Hyperkeratosis [Unknown]
  - Fall [Unknown]

NARRATIVE: CASE EVENT DATE: 20170530
